FAERS Safety Report 25520908 (Version 1)
Quarter: 2025Q3

REPORT INFORMATION
  Report Type: Spontaneous
  Country: CO (occurrence: CO)
  Receive Date: 20250705
  Receipt Date: 20250705
  Transmission Date: 20251020
  Serious: Yes (Life-Threatening, Hospitalization)
  Sender: ACCORD
  Company Number: CO-MLMSERVICE-20250626-PI555712-00306-1

PATIENT
  Age: 54 Year
  Sex: Female

DRUGS (8)
  1. MYCOPHENOLIC ACID [Suspect]
     Active Substance: MYCOPHENOLIC ACID
     Indication: Immunosuppressant drug therapy
  2. TACROLIMUS [Suspect]
     Active Substance: TACROLIMUS
     Indication: Immunosuppressant drug therapy
  3. PREDNISOLONE [Suspect]
     Active Substance: PREDNISOLONE
     Indication: Immunosuppressant drug therapy
  4. METHYLPREDNISOLONE [Suspect]
     Active Substance: METHYLPREDNISOLONE
     Indication: COVID-19 pneumonia
  5. INSULIN NOS [Concomitant]
     Active Substance: INSULIN NOS
     Indication: Diabetic ketoacidosis
  6. DILTIAZEM [Concomitant]
     Active Substance: DILTIAZEM
  7. METFORMIN [Concomitant]
     Active Substance: METFORMIN HYDROCHLORIDE
  8. GEMFIBROZIL [Concomitant]
     Active Substance: GEMFIBROZIL

REACTIONS (12)
  - Enterococcal infection [Recovered/Resolved]
  - Pseudomonas infection [Recovered/Resolved]
  - Mucormycosis [Recovered/Resolved]
  - Enterobacter infection [Recovered/Resolved]
  - Stenotrophomonas infection [Recovered/Resolved]
  - Staphylococcal infection [Recovered/Resolved]
  - Pneumonia pneumococcal [Recovered/Resolved]
  - Sinusitis [Recovered/Resolved]
  - Tooth abscess [Recovered/Resolved]
  - Periodontitis [Recovered/Resolved]
  - Orocutaneous fistula [Recovered/Resolved]
  - Osteomyelitis acute [Recovered/Resolved]
